FAERS Safety Report 9186017 (Version 2)
Quarter: 2013Q2

REPORT INFORMATION
  Report Type: Spontaneous
  Country: GR (occurrence: GR)
  Receive Date: 20130325
  Receipt Date: 20130612
  Transmission Date: 20140414
  Serious: Yes (Other)
  Sender: FDA-Public Use
  Company Number: GR-MYLANLABS-2013S1006266

PATIENT
  Age: 85 Year
  Sex: Male

DRUGS (1)
  1. CLARITHROMYCIN [Suspect]
     Indication: BRONCHITIS
     Route: 048
     Dates: start: 20130222, end: 20130225

REACTIONS (1)
  - Hypotension [Recovered/Resolved]
